FAERS Safety Report 9057834 (Version 6)
Quarter: 2016Q1

REPORT INFORMATION
  Report Type: Spontaneous
  Country: US (occurrence: US)
  Receive Date: 20130204
  Receipt Date: 20160327
  Transmission Date: 20160526
  Serious: Yes (Disabling)
  Sender: FDA-Public Use
  Company Number: US-009507513-98081382

PATIENT
  Sex: Male

DRUGS (2)
  1. PROPECIA [Suspect]
     Active Substance: FINASTERIDE
     Indication: ALOPECIA
     Dosage: 1 MG, UNK
     Route: 048
     Dates: start: 2003, end: 20110127
  2. PROPECIA [Suspect]
     Active Substance: FINASTERIDE
     Indication: ANDROGENETIC ALOPECIA
     Dosage: 1 MG, UNK
     Route: 048
     Dates: start: 19980518, end: 19980811

REACTIONS (28)
  - Infertility male [Unknown]
  - Chills [Recovered/Resolved]
  - Varicocele [Unknown]
  - Ligament sprain [Unknown]
  - Total sperm count decreased [Unknown]
  - Disorientation [Recovered/Resolved]
  - Sperm concentration decreased [Unknown]
  - Erectile dysfunction [Unknown]
  - Cognitive disorder [Not Recovered/Not Resolved]
  - Spermatozoa progressive motility decreased [Unknown]
  - Pollakiuria [Unknown]
  - Nocturia [Unknown]
  - Sperm analysis abnormal [Unknown]
  - Sexual dysfunction [Not Recovered/Not Resolved]
  - Spermatozoa progressive motility decreased [Unknown]
  - Depression [Not Recovered/Not Resolved]
  - Dislocation of vertebra [Not Recovered/Not Resolved]
  - Tremor [Recovered/Resolved]
  - Muscle rigidity [Recovered/Resolved]
  - Muscle disorder [Recovered/Resolved]
  - Heart rate increased [Recovered/Resolved]
  - Spermatogenesis abnormal [Unknown]
  - Epididymitis [Unknown]
  - Road traffic accident [Unknown]
  - Contusion [Unknown]
  - Sperm concentration decreased [Unknown]
  - Nausea [Recovered/Resolved]
  - Varicocele repair [Unknown]

NARRATIVE: CASE EVENT DATE: 1998
